FAERS Safety Report 18109509 (Version 1)
Quarter: 2020Q3

REPORT INFORMATION
  Report Type: Spontaneous
  Country: US (occurrence: US)
  Receive Date: 20200804
  Receipt Date: 20200804
  Transmission Date: 20201103
  Serious: Yes (Hospitalization)
  Sender: FDA-Public Use
  Company Number: US-ROCHE-2641743

PATIENT
  Age: 63 Year
  Sex: Female

DRUGS (2)
  1. XELODA [Suspect]
     Active Substance: CAPECITABINE
     Indication: PRODUCT USED FOR UNKNOWN INDICATION
     Route: 048
     Dates: start: 20200326
  2. XELODA [Suspect]
     Active Substance: CAPECITABINE
     Route: 048
     Dates: start: 202004

REACTIONS (5)
  - Herpes zoster [Unknown]
  - Sinusitis [Unknown]
  - Pneumonia [Unknown]
  - Pyrexia [Unknown]
  - Headache [Unknown]

NARRATIVE: CASE EVENT DATE: 20200713
